FAERS Safety Report 4608669-3 (Version None)
Quarter: 2005Q1

REPORT INFORMATION
  Report Type: 
  Country: None (occurrence: None)
  Receive Date: 20050315
  Receipt Date: 20050307
  Transmission Date: 20050727
  Serious: Yes (Other)
  Sender: FDA-Public Use
  Company Number: GB-MERCK-0503GBR00073

PATIENT
  Age: 66 Year
  Sex: Male

DRUGS (3)
  1. ZETIA [Suspect]
     Indication: BLOOD CHOLESTEROL INCREASED
     Route: 048
     Dates: start: 20050219, end: 20050220
  2. ATENOLOL [Concomitant]
     Indication: HYPERTENSION
     Route: 048
     Dates: start: 20020101
  3. TERBINAFINE [Concomitant]
     Route: 048
     Dates: start: 20050205, end: 20050218

REACTIONS (1)
  - DERMATITIS EXFOLIATIVE [None]
